FAERS Safety Report 5573266-2 (Version None)
Quarter: 2007Q4

REPORT INFORMATION
  Report Type: 
  Country: None (occurrence: None)
  Receive Date: 20071224
  Receipt Date: 20071219
  Transmission Date: 20080405
  Serious: Yes (Life-Threatening, Hospitalization, Other)
  Sender: FDA-Public Use
  Company Number: PHEH2007US14442

PATIENT
  Age: 37 Year
  Sex: Male
  Weight: 90.249 kg

DRUGS (10)
  1. TEKTURNA [Suspect]
     Indication: HYPERTENSION
     Dosage: UNK, UNK
     Dates: start: 20071019, end: 20071105
  2. DIOVAN [Concomitant]
     Dosage: 320 MG, UNK
  3. METOPROLOL TARTRATE [Concomitant]
     Dosage: 100 MG, UNK
  4. NORVASC [Concomitant]
     Dosage: 10 MG, UNK
  5. KLONOPIN [Concomitant]
     Dosage: 1 MG, BID
  6. PRILOSEC [Concomitant]
     Dosage: 20 UNK, UNK
  7. K-DUR 10 [Concomitant]
     Dosage: UNK, BID
  8. COLESTIPOL HYDROCHLORIDE [Concomitant]
     Dosage: 2 G, QD
  9. AUGMENTIN /UNK/ [Concomitant]
     Dosage: 500-125 MG, Q12H
  10. NASONEX [Concomitant]
     Dosage: 50 UG, UNK

REACTIONS (29)
  - AMNESIA [None]
  - ASTHENIA [None]
  - BLOOD MAGNESIUM ABNORMAL [None]
  - CONTUSION [None]
  - CONVULSION [None]
  - COUGH [None]
  - DEPRESSION [None]
  - DIASTOLIC DYSFUNCTION [None]
  - DIZZINESS [None]
  - DYSARTHRIA [None]
  - FATIGUE [None]
  - FEELING ABNORMAL [None]
  - HEADACHE [None]
  - HYPOKALAEMIA [None]
  - HYPOTENSION [None]
  - LABILE BLOOD PRESSURE [None]
  - LOSS OF CONSCIOUSNESS [None]
  - MALIGNANT HYPERTENSION [None]
  - ORTHOSTATIC HYPOTENSION [None]
  - PALPITATIONS [None]
  - PHOTOPHOBIA [None]
  - PYREXIA [None]
  - SINUS BRADYCARDIA [None]
  - SINUS DISORDER [None]
  - SOMNOLENCE [None]
  - SYNCOPE [None]
  - URINARY INCONTINENCE [None]
  - VERTIGO [None]
  - VISUAL DISTURBANCE [None]
